FAERS Safety Report 21621434 (Version 2)
Quarter: 2022Q4

REPORT INFORMATION
  Report Type: Spontaneous
  Country: CN (occurrence: CN)
  Receive Date: 20221121
  Receipt Date: 20221212
  Transmission Date: 20230112
  Serious: Yes (Life-Threatening, Hospitalization, Other)
  Sender: FDA-Public Use
  Company Number: CN-MLMSERVICE-20221108-3906272-1

PATIENT
  Age: 63 Year
  Sex: Male

DRUGS (5)
  1. PACLITAXEL [Suspect]
     Active Substance: PACLITAXEL
     Dosage: PACLITAXEL-COATED BALLOON, 3UG/MM2, THE DILATION TIME WAS 60 SECONDS
  2. CILOSTAZOL [Concomitant]
     Active Substance: CILOSTAZOL
     Dosage: 200 MG, 1X/DAY
  3. ASPIRIN [Concomitant]
     Active Substance: ASPIRIN
     Dosage: 100 MG, 1X/DAY
  4. HEPARIN [Concomitant]
     Active Substance: HEPARIN SODIUM
     Dosage: 100 IU/KG
  5. HEPARIN [Concomitant]
     Active Substance: HEPARIN SODIUM
     Dosage: AS NECESSARY

REACTIONS (3)
  - Hypotension [Recovering/Resolving]
  - Orthostatic hypotension [Recovered/Resolved]
  - Arterial occlusive disease [Recovered/Resolved]
